FAERS Safety Report 6310665-5 (Version None)
Quarter: 2009Q3

REPORT INFORMATION
  Report Type: 
  Country: None (occurrence: None)
  Receive Date: 20090811
  Receipt Date: 20090805
  Transmission Date: 20100115
  Serious: Yes (Other)
  Sender: FDA-Public Use
  Company Number: 2009SP018282

PATIENT
  Age: 57 Year
  Sex: Female

DRUGS (2)
  1. RIBAVIRIN [Suspect]
     Indication: DRUG USE FOR UNKNOWN INDICATION
     Dosage: ; QD; PO
     Route: 048
     Dates: start: 20080501, end: 20081001
  2. PEGINTERFERON ALFA-2A (PEGINTERFERON ALFA-2A) [Suspect]
     Indication: DRUG USE FOR UNKNOWN INDICATION
     Dosage: ;QW; SC
     Dates: start: 20080501, end: 20081001

REACTIONS (1)
  - AUTOIMMUNE THYROIDITIS [None]
